FAERS Safety Report 10080582 (Version 2)
Quarter: 2014Q2

REPORT INFORMATION
  Report Type: Spontaneous
  Country: DE (occurrence: None)
  Receive Date: 20140414
  Receipt Date: 20140423
  Transmission Date: 20141212
  Serious: Yes (Death, Life-Threatening, Hospitalization, Other)
  Sender: FDA-Public Use
  Company Number: AUR-APL-2014-04170

PATIENT
  Age: 74 Year
  Sex: Female
  Weight: 86 kg

DRUGS (15)
  1. CLOPIDOGREL [Suspect]
     Indication: CORONARY ARTERIAL STENT INSERTION
     Dosage: 75MG (75MG, 1 IN 1 D) ORAL
     Route: 048
     Dates: start: 20130912, end: 20131105
  2. PRAVASTATIN [Suspect]
     Indication: HYPERLIPIDAEMIA
     Route: 048
     Dates: start: 200901, end: 20131105
  3. AMITRIPTYLIN [Suspect]
     Indication: PAIN
     Dosage: 50MG (50MG, 1 IN 1D) ORAL
     Route: 048
     Dates: start: 201309
  4. ACETYLSALICYLIC ACID [Concomitant]
  5. PANTOPRAZOLE [Suspect]
  6. TORASERMID (TORASEMIDE) [Concomitant]
  7. BISOPROLOL (BISOPROLOL) [Concomitant]
  8. RAMIPRIL (RAMIPRIL) [Concomitant]
  9. ALLOPURINOL (ALLOPURINOL) [Concomitant]
  10. LERCANIDIPIN (LERCANIDIPINE) [Concomitant]
  11. COLECALCIFEROL (COLECALCIFEROL) [Concomitant]
  12. METAMIZOL (METAMIZOLE MAGNESIUM) [Concomitant]
  13. PREGABALIN (PREGABALIN) [Concomitant]
  14. MOXONIDI (MOXONIDINE) [Concomitant]
  15. MOVICOL (POLYETHYL. GLYC. W/POTAS. CHLOR./SOD.BICARB) [Concomitant]

REACTIONS (15)
  - Renal failure acute [None]
  - Gastric ulcer haemorrhage [None]
  - Circulatory collapse [None]
  - Enterococcus test positive [None]
  - Device related sepsis [None]
  - Staphylococcal sepsis [None]
  - Candida sepsis [None]
  - Pneumonia [None]
  - Clostridium colitis [None]
  - Dialysis [None]
  - Azotaemia [None]
  - Enterococcal infection [None]
  - Skin infection [None]
  - Acute hepatic failure [None]
  - Procedural complication [None]
